FAERS Safety Report 22338512 (Version 1)
Quarter: 2023Q2

REPORT INFORMATION
  Report Type: Spontaneous
  Country: US (occurrence: None)
  Receive Date: 20230518
  Receipt Date: 20230518
  Transmission Date: 20230722
  Serious: No
  Sender: FDA-Public Use
  Company Number: US-ROCHE-3257132

PATIENT
  Sex: Male
  Weight: 16.344 kg

DRUGS (5)
  1. ACTEMRA [Suspect]
     Active Substance: TOCILIZUMAB
     Indication: Immunodeficiency
     Dosage: LAST DOSE RECEIVED ON 30/DEC/2022 AND NEXT DOSAGE DUE FOR 13/JAN/2023
     Route: 058
     Dates: start: 202203
  2. ACTEMRA [Suspect]
     Active Substance: TOCILIZUMAB
  3. IRON [Suspect]
     Active Substance: IRON
     Indication: Product used for unknown indication
     Dosage: ONGOING: NO
     Route: 065
  4. PREDNISONE [Concomitant]
     Active Substance: PREDNISONE
     Indication: Rash
     Dosage: MORE DOSAGE INFORMATION: 1/2 OF 1 ML OR 0.5 ML DAILY; FORMULATION: LIQUID
     Route: 048
  5. PREDNISONE [Concomitant]
     Active Substance: PREDNISONE
     Indication: Pyrexia

REACTIONS (8)
  - Vomiting [Recovered/Resolved]
  - Rash [Unknown]
  - Pyrexia [Unknown]
  - Device malfunction [Unknown]
  - Off label use [Unknown]
  - Product dose omission issue [Unknown]
  - Wrong technique in product usage process [Unknown]
  - Needle issue [Unknown]

NARRATIVE: CASE EVENT DATE: 20221217
